FAERS Safety Report 10211511 (Version 2)
Quarter: 2014Q2

REPORT INFORMATION
  Report Type: Spontaneous
  Country: NO (occurrence: NO)
  Receive Date: 20140602
  Receipt Date: 20140602
  Transmission Date: 20141212
  Serious: Yes (Death, Hospitalization, Other)
  Sender: FDA-Public Use
  Company Number: NO-WATSON-2014-10168

PATIENT
  Age: 22 Year
  Sex: Female
  Weight: 53 kg

DRUGS (2)
  1. CYCLIZINE (UNKNOWN) [Suspect]
     Indication: COMPLETED SUICIDE
     Dosage: UNK; CYCLIZINE HYDROCHLORIDE
     Route: 048
  2. MECLIZINE (UNKNOWN) [Suspect]
     Indication: SUICIDE ATTEMPT
     Dosage: UNK
     Route: 048

REACTIONS (9)
  - Completed suicide [Fatal]
  - Toxicity to various agents [Fatal]
  - Intentional overdose [Fatal]
  - Loss of consciousness [Not Recovered/Not Resolved]
  - Aspiration [None]
  - Pulmonary congestion [None]
  - Pulmonary oedema [None]
  - Cardiovascular disorder [None]
  - Hepatic necrosis [None]
